FAERS Safety Report 18054031 (Version 8)
Quarter: 2025Q3

REPORT INFORMATION
  Report Type: Spontaneous
  Country: US (occurrence: US)
  Receive Date: 20200722
  Receipt Date: 20250929
  Transmission Date: 20251020
  Serious: No
  Sender: PFIZER
  Company Number: US-PFIZER INC-2020279354

PATIENT
  Age: 69 Year
  Sex: Male
  Weight: 72.57 kg

DRUGS (3)
  1. XELJANZ XR [Suspect]
     Active Substance: TOFACITINIB CITRATE
     Indication: Rheumatoid arthritis
     Dosage: 11 MG, 1X/DAY
  2. LISINOPRIL [Concomitant]
     Active Substance: LISINOPRIL
     Indication: Hypertension
  3. XARELTO [Concomitant]
     Active Substance: RIVAROXABAN
     Indication: Hypertension

REACTIONS (2)
  - Peripheral swelling [Unknown]
  - Dysphagia [Unknown]
